FAERS Safety Report 16786262 (Version 3)
Quarter: 2019Q4

REPORT INFORMATION
  Report Type: Spontaneous
  Country: ES (occurrence: ES)
  Receive Date: 20190909
  Receipt Date: 20191209
  Transmission Date: 20200122
  Serious: Yes (Death, Hospitalization, Other)
  Sender: FDA-Public Use
  Company Number: ES-TAKEDA-2019TUS051122

PATIENT
  Sex: Male

DRUGS (1)
  1. ICLUSIG [Suspect]
     Active Substance: PONATINIB
     Indication: CHRONIC MYELOID LEUKAEMIA
     Dosage: 45 MILLIGRAM, QD
     Route: 048

REACTIONS (4)
  - Chronic myeloid leukaemia [Fatal]
  - Splenomegaly [Not Recovered/Not Resolved]
  - Malaise [Not Recovered/Not Resolved]
  - Drug resistance [Not Recovered/Not Resolved]
